FAERS Safety Report 11769305 (Version 3)
Quarter: 2015Q4

REPORT INFORMATION
  Report Type: Report from Study
  Country: US (occurrence: US)
  Receive Date: 20151123
  Receipt Date: 20151210
  Transmission Date: 20160304
  Serious: Yes (Hospitalization)
  Sender: FDA-Public Use
  Company Number: US-EISAI MEDICAL RESEARCH-EC-2015-012166

PATIENT
  Sex: Female
  Weight: 80.74 kg

DRUGS (10)
  1. MIRTAZAPINE. [Concomitant]
     Active Substance: MIRTAZAPINE
  2. LEVOTHYROXINE. [Concomitant]
     Active Substance: LEVOTHYROXINE
  3. LENVIMA [Suspect]
     Active Substance: LENVATINIB
     Indication: THYROID CANCER
     Route: 048
     Dates: start: 20151023, end: 201511
  4. LENVIMA [Suspect]
     Active Substance: LENVATINIB
     Route: 048
     Dates: start: 201511
  5. OXYCODONE HYDROCHLORIDE. [Concomitant]
     Active Substance: OXYCODONE HYDROCHLORIDE
  6. MORPHINE SULFATE. [Concomitant]
     Active Substance: MORPHINE SULFATE
  7. DEXAMETHASONE. [Concomitant]
     Active Substance: DEXAMETHASONE
  8. NORVASC [Concomitant]
     Active Substance: AMLODIPINE BESYLATE
  9. DIAZEPAM. [Concomitant]
     Active Substance: DIAZEPAM
  10. ZIPRASIDONE HCL [Concomitant]
     Active Substance: ZIPRASIDONE HYDROCHLORIDE

REACTIONS (8)
  - Blood glucose increased [Not Recovered/Not Resolved]
  - Seizure [Unknown]
  - Confusional state [Unknown]
  - Diarrhoea [Unknown]
  - Hypertension [Not Recovered/Not Resolved]
  - Fatigue [Unknown]
  - Erythema [Not Recovered/Not Resolved]
  - Visual impairment [Unknown]

NARRATIVE: CASE EVENT DATE: 2015
